FAERS Safety Report 20775668 (Version 1)
Quarter: 2022Q2

REPORT INFORMATION
  Report Type: Spontaneous
  Country: HR (occurrence: None)
  Receive Date: 20220502
  Receipt Date: 20220502
  Transmission Date: 20220720
  Serious: Yes (Hospitalization)
  Sender: FDA-Public Use
  Company Number: HR-ROCHE-3088149

PATIENT
  Sex: Female

DRUGS (1)
  1. RIVOTRIL [Suspect]
     Active Substance: CLONAZEPAM
     Indication: Product used for unknown indication
     Dosage: (15 MG, DAILY (ADR IS ADEQUATELY LABELLED: YES.); CLONAZEPAM; DOSE: 30 TBL X 0.5 MG)
     Route: 048
     Dates: start: 20220329, end: 20220329

REACTIONS (3)
  - Somnolence [Unknown]
  - Intentional overdose [Unknown]
  - Suicide attempt [Unknown]

NARRATIVE: CASE EVENT DATE: 20220329
